FAERS Safety Report 5188071-9 (Version None)
Quarter: 2006Q4

REPORT INFORMATION
  Report Type: 
  Country: None (occurrence: None)
  Receive Date: 20061221
  Receipt Date: 20061213
  Transmission Date: 20070319
  Serious: Yes (Hospitalization)
  Sender: FDA-Public Use
  Company Number: NL-JNJFOC-20061200318

PATIENT
  Sex: Female
  Weight: 53 kg

DRUGS (6)
  1. INFLIXIMAB [Suspect]
     Indication: CROHN'S DISEASE
     Route: 042
  2. BISACODYL [Concomitant]
     Indication: CROHN'S DISEASE
     Route: 065
  3. CALCICHEW [Concomitant]
     Indication: CROHN'S DISEASE
     Route: 065
  4. ENTOCORT [Concomitant]
     Indication: CROHN'S DISEASE
     Route: 065
  5. ETHINYL ESTRADIOL TAB [Concomitant]
     Indication: CONTRACEPTION
     Route: 065
  6. LEVONORGESTREL [Concomitant]
     Indication: CONTRACEPTION
     Route: 065

REACTIONS (2)
  - CONDITION AGGRAVATED [None]
  - CROHN'S DISEASE [None]
